FAERS Safety Report 5852873-3 (Version None)
Quarter: 2008Q3

REPORT INFORMATION
  Report Type: 
  Country: None (occurrence: None)
  Receive Date: 20080815
  Receipt Date: 20071026
  Transmission Date: 20090109
  Serious: Yes (Hospitalization)
  Sender: FDA-Public Use
  Company Number: 07H-163-0313404-00

PATIENT
  Age: 73 Year
  Sex: Female
  Weight: 106.5953 kg

DRUGS (13)
  1. VANCOMYCIN HYDROCHLORIDE [Suspect]
     Dosage: SEE IMAGE
     Route: 042
     Dates: start: 20070914, end: 20070922
  2. VANCOMYCIN HYDROCHLORIDE [Suspect]
     Dosage: SEE IMAGE
     Route: 042
     Dates: start: 20070923
  3. FUROSEMIDE [Concomitant]
  4. COZAAR [Concomitant]
  5. LIBRIUM [Concomitant]
  6. GLUCOPHAGE [Concomitant]
  7. POTASSIUM CHLORIDE [Concomitant]
  8. HERBAL LAXATIVE (SENNA ALEXANDRINA) [Concomitant]
  9. SYNTHROID [Concomitant]
  10. METOPROLOL TARTRATE [Concomitant]
  11. PREVACID [Concomitant]
  12. PROCHLORPERAZINE MALEATE [Concomitant]
  13. PLAVIX [Concomitant]

REACTIONS (1)
  - NEPHROPATHY TOXIC [None]
